FAERS Safety Report 15798059 (Version 2)
Quarter: 2019Q1

REPORT INFORMATION
  Report Type: Spontaneous
  Country: BR (occurrence: BR)
  Receive Date: 20190108
  Receipt Date: 20190110
  Transmission Date: 20190417
  Serious: Yes (Other)
  Sender: FDA-Public Use
  Company Number: BR-PFIZER INC-2019009451

PATIENT
  Age: 48 Year
  Sex: Male

DRUGS (1)
  1. TALIGLUCERASE ALFA [Suspect]
     Active Substance: TALIGLUCERASE ALFA
     Indication: GAUCHER^S DISEASE
     Dosage: 58 UI/KG EVERY 15 DAYS
     Route: 042

REACTIONS (4)
  - Overweight [Not Recovered/Not Resolved]
  - Plantar fasciitis [Not Recovered/Not Resolved]
  - Bone infarction [Not Recovered/Not Resolved]
  - Tendonitis [Not Recovered/Not Resolved]
